FAERS Safety Report 9205942 (Version 2)
Quarter: 2014Q1

REPORT INFORMATION
  Report Type: Spontaneous
  Country: US (occurrence: US)
  Receive Date: 20130403
  Receipt Date: 20140102
  Transmission Date: 20141002
  Serious: Yes (Other)
  Sender: FDA-Public Use
  Company Number: US-BAYER-2013-039721

PATIENT
  Age: 19 Year
  Sex: Female

DRUGS (4)
  1. BEYAZ [Suspect]
     Dosage: UNK
     Dates: start: 201106
  2. RANITIDINE [Concomitant]
     Dosage: 150 MG, UNK
  3. IBUPROFEN [Concomitant]
  4. MIRALAX [Concomitant]

REACTIONS (5)
  - Cholecystectomy [None]
  - Biliary dyskinesia [None]
  - Injury [None]
  - Pain [None]
  - Emotional distress [None]
